FAERS Safety Report 14950146 (Version 1)
Quarter: 2018Q2

REPORT INFORMATION
  Report Type: Spontaneous
  Country: DK (occurrence: DK)
  Receive Date: 20180530
  Receipt Date: 20180530
  Transmission Date: 20180711
  Serious: Yes (Death, Hospitalization)
  Sender: FDA-Public Use
  Company Number: DK-TEVA-2018-DK-898204

PATIENT
  Age: 65 Year
  Sex: Female

DRUGS (15)
  1. EMTHEXATE [Suspect]
     Active Substance: METHOTREXATE
     Indication: PSORIASIS
     Route: 048
     Dates: start: 20170428, end: 201705
  2. HJERTEMAGNYL [Concomitant]
     Active Substance: ASPIRIN\MAGNESIUM OXIDE
     Indication: THROMBOSIS PROPHYLAXIS
     Dosage: 75 MILLIGRAM DAILY;
     Route: 048
     Dates: start: 20160228
  3. BERODUAL [Concomitant]
     Active Substance: FENOTEROL HYDROBROMIDE\IPRATROPIUM BROMIDE
     Indication: BRONCHOSPASM
     Dosage: 8 DOSAGE FORMS DAILY; STRENGTH: 50 + 20 MICROGRAMS/BREATH
     Route: 055
     Dates: start: 20160228
  4. CRESTOR [Concomitant]
     Active Substance: ROSUVASTATIN CALCIUM
     Indication: HYPERCHOLESTEROLAEMIA
     Dosage: 10 MILLIGRAM DAILY;
     Route: 048
     Dates: start: 20121209
  5. FLUOXETINE [Concomitant]
     Active Substance: FLUOXETINE HYDROCHLORIDE
     Indication: DEPRESSION
     Dosage: 20 MILLIGRAM DAILY;
     Route: 048
     Dates: start: 20120731
  6. ISOPHANE INSULIN [Concomitant]
     Active Substance: INSULIN NOS
     Indication: DIABETES MELLITUS
     Dosage: 52 IU (INTERNATIONAL UNIT) DAILY; STRENGHT: 100 IU/ML.
     Route: 058
     Dates: start: 20160224
  7. DAIVOBET [Concomitant]
     Active Substance: BETAMETHASONE DIPROPIONATE\CALCIPOTRIENE
     Indication: PSORIASIS
     Dosage: 1 DOSAGE FORMS DAILY; STRENGTH: 50 MICROGRAMS/G + 0.5 MG/G.
     Route: 003
     Dates: start: 20170323
  8. METOPROLOL SUCCINATE. [Concomitant]
     Active Substance: METOPROLOL SUCCINATE
     Indication: HYPERTENSION
     Dosage: 200 MILLIGRAM DAILY;
     Route: 048
     Dates: start: 20160228
  9. POTASSIUM CHLORIDE. [Concomitant]
     Active Substance: POTASSIUM CHLORIDE
     Indication: MINERAL SUPPLEMENTATION
     Dosage: 750 MILLIGRAM DAILY;
     Route: 048
     Dates: start: 20160928
  10. GIONA EASYHALER [Concomitant]
     Active Substance: BUDESONIDE
     Indication: ASTHMA
     Dosage: 400 MICROGRAM DAILY;
     Route: 055
     Dates: start: 20160624
  11. PINEX [Concomitant]
     Active Substance: ACETAMINOPHEN
     Indication: PAIN
     Dosage: 4000 MILLIGRAM DAILY; DOSE: 2 TABLETS AS NEEDED.
     Route: 048
  12. PANTOPRAZOLE [Concomitant]
     Active Substance: PANTOPRAZOLE
     Indication: GASTROOESOPHAGEAL REFLUX DISEASE
     Dosage: 40 MILLIGRAM DAILY;
     Route: 048
     Dates: start: 20150119
  13. ALNOK [Concomitant]
     Active Substance: CETIRIZINE HYDROCHLORIDE
     Indication: SEASONAL ALLERGY
     Dosage: 10 MILLIGRAM DAILY;
     Route: 048
     Dates: start: 20150326
  14. FURIX [Concomitant]
     Active Substance: FUROSEMIDE
     Indication: DIURETIC THERAPY
     Dosage: 160 MILLIGRAM DAILY;
     Route: 048
     Dates: start: 20160228
  15. DIPRODERM [Concomitant]
     Active Substance: BETAMETHASONE DIPROPIONATE
     Indication: ECZEMA
     Dosage: 2 DOSAGE FORMS DAILY; STRENGTH: 0.05%. DOSE: APPLY IN A THICK LAYER MORNING AND EVENING.
     Route: 003
     Dates: start: 20120625

REACTIONS (8)
  - Metabolic acidosis [Fatal]
  - Leukopenia [Fatal]
  - Sepsis [Fatal]
  - Subarachnoid haemorrhage [Fatal]
  - Prerenal failure [Fatal]
  - Bone marrow failure [Fatal]
  - Hyperkalaemia [Fatal]
  - Pancytopenia [Fatal]

NARRATIVE: CASE EVENT DATE: 20170521
